FAERS Safety Report 9263422 (Version 1)
Quarter: 2013Q2

REPORT INFORMATION
  Report Type: Spontaneous
  Country: US (occurrence: US)
  Receive Date: 20130430
  Receipt Date: 20130430
  Transmission Date: 20140414
  Serious: No
  Sender: FDA-Public Use
  Company Number: US-ABBOTT-13P-163-1064388-00

PATIENT
  Sex: Male
  Weight: 68.1 kg

DRUGS (4)
  1. CREON [Suspect]
     Indication: PANCREATITIS
     Dosage: 3 TAB 3-4 TIMES A DAY
     Dates: start: 201301
  2. OMEPRAZOLE [Concomitant]
     Indication: PRODUCT USED FOR UNKNOWN INDICATION
  3. FAMOTIDINE [Concomitant]
     Indication: PRODUCT USED FOR UNKNOWN INDICATION
  4. SIMVASTATIN [Concomitant]
     Indication: PRODUCT USED FOR UNKNOWN INDICATION

REACTIONS (1)
  - Abdominal pain upper [Not Recovered/Not Resolved]
